FAERS Safety Report 4298442-0 (Version None)
Quarter: 2004Q1

REPORT INFORMATION
  Report Type: 
  Country: None (occurrence: None)
  Receive Date: 20040218
  Receipt Date: 20030722
  Transmission Date: 20041129
  Serious: Yes (Other)
  Sender: FDA-Public Use
  Company Number: US-BRISTOL-MYERS SQUIBB COMPANY-12339958

PATIENT
  Age: 49 Year
  Sex: Female

DRUGS (17)
  1. STADOL [Suspect]
     Indication: MIGRAINE
     Route: 045
  2. IMITREX [Concomitant]
  3. VICODIN [Concomitant]
  4. PROZAC [Concomitant]
  5. LORAZEPAM [Concomitant]
  6. MIGRANAL [Concomitant]
  7. DARVOCET-N 100 [Concomitant]
  8. HYDROCODONE + ACETAMINOPHEN [Concomitant]
  9. PHENERGAN [Concomitant]
  10. LORTAB [Concomitant]
  11. VALIUM [Concomitant]
  12. NORFLEX [Concomitant]
  13. FIORINAL W/CODEINE [Concomitant]
  14. DEMEROL [Concomitant]
  15. VISTARIL [Concomitant]
  16. TRANXENE [Concomitant]
  17. TYLENOL W/ CODEINE NO. 3 [Concomitant]

REACTIONS (1)
  - DEPENDENCE [None]
